FAERS Safety Report 10042006 (Version 1)
Quarter: 2014Q1

REPORT INFORMATION
  Report Type: Spontaneous
  Country: US (occurrence: US)
  Receive Date: 20140327
  Receipt Date: 20140327
  Transmission Date: 20141002
  Serious: Yes (Other)
  Sender: FDA-Public Use
  Company Number: US-BRISTOL-MYERS SQUIBB COMPANY-20545000

PATIENT
  Age: 80 Year
  Sex: Male
  Weight: 86.17 kg

DRUGS (8)
  1. ELIQUIS [Suspect]
     Indication: ATRIAL FIBRILLATION
     Route: 048
  2. LOTENSIN HCT [Concomitant]
     Dosage: 1DF:50/25UNIT NOS
  3. COREG [Concomitant]
  4. POTASSIUM CHLORIDE [Concomitant]
  5. MAG-OX [Concomitant]
  6. LIPITOR [Concomitant]
  7. LANOXIN [Concomitant]
  8. VITAMIN B12 [Concomitant]
     Route: 030

REACTIONS (1)
  - Cataract [Unknown]
